FAERS Safety Report 24992808 (Version 1)
Quarter: 2025Q1

REPORT INFORMATION
  Report Type: Spontaneous
  Country: CA (occurrence: CA)
  Receive Date: 20250221
  Receipt Date: 20250221
  Transmission Date: 20250409
  Serious: Yes (Other)
  Sender: CELLTRION
  Company Number: CA-PFIZER INC-202500033552

PATIENT

DRUGS (1)
  1. INFLECTRA [Suspect]
     Active Substance: INFLIXIMAB-DYYB
     Route: 042

REACTIONS (4)
  - Cardiac disorder [Recovering/Resolving]
  - Infection [Recovering/Resolving]
  - Surgery [Recovering/Resolving]
  - Therapy change [Recovering/Resolving]
